FAERS Safety Report 16683449 (Version 2)
Quarter: 2019Q3

REPORT INFORMATION
  Report Type: Spontaneous
  Country: HK (occurrence: HK)
  Receive Date: 20190808
  Receipt Date: 20190910
  Transmission Date: 20191004
  Serious: Yes (Other)
  Sender: FDA-Public Use
  Company Number: NZ-ACTELION-A-CH2019-194031

PATIENT

DRUGS (2)
  1. SILDENAFIL. [Concomitant]
     Active Substance: SILDENAFIL
  2. OPSUMIT [Suspect]
     Active Substance: MACITENTAN
     Indication: PULMONARY ARTERIAL HYPERTENSION
     Route: 048

REACTIONS (1)
  - Pulmonary embolism [Unknown]
